FAERS Safety Report 8643423 (Version 2)
Quarter: 2012Q4

REPORT INFORMATION
  Report Type: Report from Study
  Country: JP (occurrence: JP)
  Receive Date: 20120629
  Receipt Date: 20120829
  Transmission Date: 20130627
  Serious: Yes (Death)
  Sender: FDA-Public Use
  Company Number: JP-ROCHE-1080952

PATIENT
  Age: 65 Year
  Sex: Male
  Weight: 68 kg

DRUGS (9)
  1. XELODA [Suspect]
     Indication: METASTATIC GASTRIC CANCER
     Dosage: It is administer/one weekly holiday medicine for two weeks.
     Route: 048
     Dates: start: 20120307, end: 20120321
  2. XELODA [Suspect]
     Indication: METASTATIC GASTRIC CANCER
     Dosage: It is administer/one weekly holiday medicine for two weeks.
     Route: 048
     Dates: start: 20120328, end: 20120411
  3. XELODA [Suspect]
     Indication: METASTATIC GASTRIC CANCER
     Dosage: It is administer/one weekly holiday medicine for two weeks.
     Route: 048
     Dates: start: 20120418, end: 20120502
  4. XELODA [Suspect]
     Indication: METASTATIC GASTRIC CANCER
     Dosage: It is administer/one weekly holiday medicine for two weeks.
     Route: 048
     Dates: start: 20120516, end: 20120524
  5. CISPLATIN [Suspect]
     Indication: METASTATIC GASTRIC CANCER
     Route: 041
     Dates: start: 20120307
  6. CISPLATIN [Suspect]
     Indication: METASTATIC GASTRIC CANCER
     Route: 041
     Dates: start: 20120307, end: 20120307
  7. CISPLATIN [Suspect]
     Indication: METASTATIC GASTRIC CANCER
     Route: 041
     Dates: start: 20120328, end: 20120328
  8. CISPLATIN [Suspect]
     Indication: METASTATIC GASTRIC CANCER
     Route: 041
     Dates: start: 20120418, end: 20120418
  9. CISPLATIN [Suspect]
     Indication: METASTATIC GASTRIC CANCER
     Route: 041
     Dates: start: 20120516, end: 20120516

REACTIONS (1)
  - Cerebral infarction [Fatal]
